FAERS Safety Report 16744047 (Version 1)
Quarter: 2019Q3

REPORT INFORMATION
  Report Type: Spontaneous
  Country: US (occurrence: US)
  Receive Date: 20190827
  Receipt Date: 20190827
  Transmission Date: 20191005
  Serious: No
  Sender: FDA-Public Use
  Company Number: US-ELI_LILLY_AND_COMPANY-US201907016891

PATIENT
  Sex: Female

DRUGS (5)
  1. BASAGLAR [Suspect]
     Active Substance: INSULIN GLARGINE
     Indication: TYPE 2 DIABETES MELLITUS
     Dosage: 45-65 U, EACH MORNING
     Route: 058
     Dates: start: 201812
  2. BASAGLAR [Suspect]
     Active Substance: INSULIN GLARGINE
     Dosage: 45-65 U, EACH MORNING
     Route: 058
  3. DOXYCYCLIN [DOXYCYCLINE] [Suspect]
     Active Substance: DOXYCYCLINE
     Indication: CYST
     Dosage: UNK UNK, UNKNOWN
     Route: 065
     Dates: start: 201906
  4. DOXYCYCLIN [DOXYCYCLINE] [Suspect]
     Active Substance: DOXYCYCLINE
     Indication: INFLAMMATION
  5. NOVOLOG [Concomitant]
     Active Substance: INSULIN ASPART
     Indication: DIABETES MELLITUS
     Dosage: UNK, PRN (BEFORE EACH MEAL)

REACTIONS (6)
  - Cyst [Recovering/Resolving]
  - Blood iron decreased [Recovering/Resolving]
  - Vitamin D decreased [Recovering/Resolving]
  - Blood glucose increased [Recovering/Resolving]
  - Inflammation [Recovering/Resolving]
  - Renal function test abnormal [Recovering/Resolving]

NARRATIVE: CASE EVENT DATE: 2019
